FAERS Safety Report 15155930 (Version 1)
Quarter: 2018Q3

REPORT INFORMATION
  Report Type: Spontaneous
  Country: IE (occurrence: IE)
  Receive Date: 20180717
  Receipt Date: 20180717
  Transmission Date: 20181010
  Serious: Yes (Other)
  Sender: FDA-Public Use
  Company Number: IE-US WORLDMEDS, LLC-STA_00019855

PATIENT
  Age: 74 Year
  Sex: Female

DRUGS (4)
  1. SINEMET [Concomitant]
     Active Substance: CARBIDOPA\LEVODOPA
     Indication: PARKINSON^S DISEASE
     Route: 048
  2. SINEMET CR [Concomitant]
     Active Substance: CARBIDOPA\LEVODOPA
     Indication: PARKINSON^S DISEASE
     Route: 048
  3. ELDEPRYL [Concomitant]
     Active Substance: SELEGILINE HYDROCHLORIDE
  4. APOMORPHINE HYDROCHLORIDE [Suspect]
     Active Substance: APOMORPHINE HYDROCHLORIDE
     Indication: PARKINSON^S DISEASE
     Route: 058
     Dates: start: 200606, end: 200807

REACTIONS (2)
  - Infusion site necrosis [Recovering/Resolving]
  - Infusion site infection [Recovering/Resolving]

NARRATIVE: CASE EVENT DATE: 200806
